FAERS Safety Report 9410639 (Version 1)
Quarter: 2013Q3

REPORT INFORMATION
  Report Type: Report from Study
  Country: US (occurrence: US)
  Receive Date: 20130719
  Receipt Date: 20130719
  Transmission Date: 20140515
  Serious: Yes (Other)
  Sender: FDA-Public Use
  Company Number: US-BAYER-2013-087624

PATIENT
  Age: 78 Year
  Sex: Female

DRUGS (2)
  1. STIVARGA [Suspect]
     Indication: COLON CANCER
     Dosage: DAILY DOSE 160 MG (40 MG, 4 TABLETS, DAILY)
     Route: 048
     Dates: start: 20130705, end: 20130716
  2. COUMADIN [Concomitant]

REACTIONS (3)
  - Bleeding time prolonged [None]
  - Nausea [Not Recovered/Not Resolved]
  - Vomiting [Not Recovered/Not Resolved]
